FAERS Safety Report 16252592 (Version 1)
Quarter: 2019Q2

REPORT INFORMATION
  Report Type: Spontaneous
  Country: US (occurrence: US)
  Receive Date: 20190429
  Receipt Date: 20190429
  Transmission Date: 20190711
  Serious: No
  Sender: FDA-Public Use
  Company Number: US-ACTELION-A-NJ2019-188375

PATIENT
  Age: 71 Year
  Sex: Female

DRUGS (4)
  1. TADALAFIL. [Concomitant]
     Active Substance: TADALAFIL
  2. UPTRAVI [Suspect]
     Active Substance: SELEXIPAG
     Indication: PRODUCT USED FOR UNKNOWN INDICATION
     Dosage: 1200 MG, BID
     Route: 048
  3. AMBRISENTAN [Suspect]
     Active Substance: AMBRISENTAN
     Indication: PRODUCT USED FOR UNKNOWN INDICATION
     Dosage: 10 MG, QD
     Route: 065
     Dates: start: 20180727
  4. TYVASO [Concomitant]
     Active Substance: TREPROSTINIL

REACTIONS (8)
  - Arthralgia [Not Recovered/Not Resolved]
  - Hyperacusis [Not Recovered/Not Resolved]
  - Otitis media [Not Recovered/Not Resolved]
  - Speech disorder [Not Recovered/Not Resolved]
  - Headache [Not Recovered/Not Resolved]
  - Pain [Recovered/Resolved]
  - Dyspnoea [Not Recovered/Not Resolved]
  - Unevaluable event [Unknown]
